FAERS Safety Report 4889671-3 (Version None)
Quarter: 2006Q1

REPORT INFORMATION
  Report Type: 
  Country: None (occurrence: None)
  Receive Date: 20060120
  Receipt Date: 20060117
  Transmission Date: 20060701
  Serious: Yes (Hospitalization)
  Sender: FDA-Public Use
  Company Number: A001-319-704

PATIENT
  Age: 79 Year
  Sex: Male

DRUGS (6)
  1. DONEPEZIL HCL [Suspect]
     Indication: VASCULAR DEMENTIA
     Dosage: 5 MG, 1 IN 1 D, ORAL
     Route: 048
     Dates: start: 20040601, end: 20040921
  2. BENDROFLUAZIDE                   (BENDROFLUMETHIAZIDE) [Concomitant]
  3. ASPIRIN [Concomitant]
  4. SIMVASTATIN [Concomitant]
  5. SALBUTAMOL                  (SALBUTAMOL) [Concomitant]
  6. SYMBICORT         (FENURIL) [Concomitant]

REACTIONS (3)
  - LYMPHADENOPATHY [None]
  - SALIVARY HYPERSECRETION [None]
  - TONGUE NEOPLASM MALIGNANT STAGE UNSPECIFIED [None]
